FAERS Safety Report 7218398-8 (Version None)
Quarter: 2011Q1

REPORT INFORMATION
  Report Type: 
  Country: None (occurrence: None)
  Receive Date: 20110110
  Receipt Date: 20101227
  Transmission Date: 20110831
  Serious: Yes (Death, Hospitalization)
  Sender: FDA-Public Use
  Company Number: US-ELI_LILLY_AND_COMPANY-US201101001990

PATIENT
  Sex: Female

DRUGS (1)
  1. ALIMTA [Suspect]
     Dates: end: 20101119

REACTIONS (2)
  - HOSPITALISATION [None]
  - DEATH [None]
